FAERS Safety Report 10743308 (Version 1)
Quarter: 2015Q1

REPORT INFORMATION
  Report Type: Other
  Country: GB (occurrence: GB)
  Receive Date: 20150127
  Receipt Date: 20150127
  Transmission Date: 20150721
  Serious: Yes (Disabling, Other)
  Sender: FDA-Public Use
  Company Number: GB-MYLANLABS-2015M1001219

PATIENT

DRUGS (3)
  1. EPILIM [Suspect]
     Active Substance: VALPROATE SODIUM
     Indication: EPILEPSY
     Dosage: 900 MG, BID (DOSAGE FORM: UNSPECIFIED)
     Route: 048
     Dates: start: 20120525
  2. LAMOTRIGINE. [Suspect]
     Active Substance: LAMOTRIGINE
     Indication: EPILEPSY
     Dosage: 100 MG, BID (DOSAGE FORM: UNSPECIFIED)
     Route: 048
     Dates: start: 20130621
  3. TOPAMAX [Suspect]
     Active Substance: TOPIRAMATE
     Indication: EPILEPSY
     Dosage: 125 MG, BID (DOSAGE FORM: UNSPECIFIED)
     Route: 048
     Dates: start: 20110211, end: 201402

REACTIONS (3)
  - Visual field defect [Unknown]
  - Optic atrophy [Not Recovered/Not Resolved]
  - Maculopathy [Not Recovered/Not Resolved]

NARRATIVE: CASE EVENT DATE: 201312
